FAERS Safety Report 11984577 (Version 1)
Quarter: 2016Q1

REPORT INFORMATION
  Report Type: Spontaneous
  Country: US (occurrence: US)
  Receive Date: 20160201
  Receipt Date: 20160201
  Transmission Date: 20160526
  Serious: Yes (Other)
  Sender: FDA-Public Use
  Company Number: US-GLAXOSMITHKLINE-US2016GSK010312

PATIENT
  Sex: Female

DRUGS (9)
  1. LATUDA [Suspect]
     Active Substance: LURASIDONE HYDROCHLORIDE
     Dosage: UNK
  2. ABILIFY [Suspect]
     Active Substance: ARIPIPRAZOLE
     Indication: SCHIZOAFFECTIVE DISORDER
     Dosage: 5 MG, QD
     Route: 048
     Dates: start: 201401, end: 201403
  3. LAMICTAL [Concomitant]
     Active Substance: LAMOTRIGINE
     Indication: BIPOLAR DISORDER
  4. FLUOXETINE [Suspect]
     Active Substance: FLUOXETINE HYDROCHLORIDE
     Indication: PRODUCT USED FOR UNKNOWN INDICATION
     Dosage: UNK
     Dates: start: 2013
  5. LATUDA [Suspect]
     Active Substance: LURASIDONE HYDROCHLORIDE
     Indication: PRODUCT USED FOR UNKNOWN INDICATION
     Dosage: UNK
     Dates: start: 2014, end: 2014
  6. WELLBUTRIN [Suspect]
     Active Substance: BUPROPION HYDROCHLORIDE
     Indication: PRODUCT USED FOR UNKNOWN INDICATION
     Dosage: UNK
     Dates: start: 201501, end: 201502
  7. FLUOXETINE [Suspect]
     Active Substance: FLUOXETINE HYDROCHLORIDE
     Dosage: UNK
     Dates: start: 201501, end: 201502
  8. CLONAZEPAM. [Suspect]
     Active Substance: CLONAZEPAM
     Indication: DYSTONIA
     Dosage: UNK
  9. ABILIFY [Suspect]
     Active Substance: ARIPIPRAZOLE
     Dosage: UNK
     Dates: start: 201408, end: 201502

REACTIONS (18)
  - Erythema [Recovered/Resolved]
  - Motor dysfunction [Unknown]
  - Off label use [Unknown]
  - Drug ineffective [Unknown]
  - Panic attack [Unknown]
  - Feeling abnormal [Unknown]
  - Detoxification [Unknown]
  - Chest pain [Unknown]
  - Torticollis [Unknown]
  - Muscle contractions involuntary [Not Recovered/Not Resolved]
  - Fall [Unknown]
  - Weight increased [Unknown]
  - Sweat gland disorder [Unknown]
  - Emergency care [Unknown]
  - Gastritis [Unknown]
  - Gastrointestinal disorder [Recovered/Resolved]
  - Head injury [Unknown]
  - Muscle spasms [Unknown]

NARRATIVE: CASE EVENT DATE: 2014
